FAERS Safety Report 19676507 (Version 2)
Quarter: 2023Q2

REPORT INFORMATION
  Report Type: Spontaneous
  Country: FR (occurrence: FR)
  Receive Date: 20210810
  Receipt Date: 20230508
  Transmission Date: 20230722
  Serious: Yes (Hospitalization, Other)
  Sender: FDA-Public Use
  Company Number: FR-VIIV HEALTHCARE LIMITED-FR2019EME211259

PATIENT
  Age: 72 Year
  Sex: Male

DRUGS (4)
  1. METFORMIN [Interacting]
     Active Substance: METFORMIN HYDROCHLORIDE
     Indication: Type 2 diabetes mellitus
     Dosage: 2000 MILLIGRAM, ONCE A DAY(1000 MG, BID (MORNING AND EVENING)
     Route: 065
  2. METFORMIN [Interacting]
     Active Substance: METFORMIN HYDROCHLORIDE
     Dosage: 1000 MILLIGRAM
     Route: 065
  3. IBUPROFEN [Interacting]
     Active Substance: IBUPROFEN
     Indication: Product used for unknown indication
     Dosage: UNK
     Route: 065
  4. DOLUTEGRAVIR SODIUM\RILPIVIRINE HYDROCHLORIDE [Interacting]
     Active Substance: DOLUTEGRAVIR SODIUM\RILPIVIRINE HYDROCHLORIDE
     Indication: HIV infection
     Dosage: 1 DOSAGE FORM, DAILY (1 DF, 50 MG/25MG DAILY)
     Route: 065

REACTIONS (7)
  - Lactic acidosis [Unknown]
  - Acute kidney injury [Unknown]
  - Glomerular filtration rate decreased [Unknown]
  - Vomiting [Unknown]
  - Abdominal pain [Unknown]
  - Dehydration [Unknown]
  - Drug interaction [Unknown]
